FAERS Safety Report 15936827 (Version 1)
Quarter: 2019Q1

REPORT INFORMATION
  Report Type: Spontaneous
  Country: SE (occurrence: SE)
  Receive Date: 20190208
  Receipt Date: 20190208
  Transmission Date: 20190417
  Serious: Yes (Hospitalization, Other)
  Sender: FDA-Public Use
  Company Number: SE-AUROBINDO-AUR-APL-2019-006387

PATIENT

DRUGS (3)
  1. LOSARTAN POTASSIUM / HYDROCHLOROTHIAZIDE [Suspect]
     Active Substance: HYDROCHLOROTHIAZIDE\LOSARTAN POTASSIUM
     Indication: PRODUCT USED FOR UNKNOWN INDICATION
     Dosage: UNK
     Route: 065
     Dates: start: 20180122, end: 20180122
  2. COCILLANA-ETYFIN [Suspect]
     Active Substance: ETHYLMORPHINE HYDROCHLORIDE\HERBALS
     Indication: PRODUCT USED FOR UNKNOWN INDICATION
     Dosage: 500 MILLILITER
     Route: 065
     Dates: start: 20180122, end: 20180122
  3. POTASSIUM CHLORIDE. [Suspect]
     Active Substance: POTASSIUM CHLORIDE
     Indication: PRODUCT USED FOR UNKNOWN INDICATION
     Dosage: 20-30 TABLET (SARSTIFT)
     Route: 048
     Dates: start: 20180122, end: 20180122

REACTIONS (2)
  - Intentional self-injury [Unknown]
  - Intentional overdose [Unknown]

NARRATIVE: CASE EVENT DATE: 20180122
